FAERS Safety Report 7028229-7 (Version None)
Quarter: 2010Q3

REPORT INFORMATION
  Report Type: 
  Country: None (occurrence: None)
  Receive Date: 20100930
  Receipt Date: 20100914
  Transmission Date: 20110219
  Serious: Yes (Hospitalization)
  Sender: FDA-Public Use
  Company Number: 2010003549

PATIENT
  Age: 62 Year
  Sex: Male

DRUGS (7)
  1. ERLOTINIB HYDROCHLORIDE [Suspect]
     Indication: BILE DUCT CANCER
     Dosage: (100 MG,QD),ORAL
     Route: 048
     Dates: start: 20091210, end: 20100831
  2. GEMCITABINE [Suspect]
     Indication: BILE DUCT CANCER
     Dosage: (1000 MG/M2,Q2W),INTRAVENOUS
     Route: 042
     Dates: start: 20091210, end: 20100831
  3. OXALIPLATIN [Suspect]
     Indication: BILE DUCT CANCER
     Dosage: (50 MG/M2,Q2W),INTRAVENOUS
     Route: 042
     Dates: start: 20091211, end: 20100716
  4. BEARSE [Concomitant]
  5. GODEX CAP [Concomitant]
  6. MYPOL [Concomitant]
  7. MEGESTROL ACETATE [Concomitant]

REACTIONS (10)
  - ABDOMINAL DISTENSION [None]
  - BILIARY CANCER METASTATIC [None]
  - DECREASED APPETITE [None]
  - DUODENAL OBSTRUCTION [None]
  - FLATULENCE [None]
  - GASTRIC DISORDER [None]
  - ILEUS [None]
  - MALIGNANT NEOPLASM PROGRESSION [None]
  - NEUROPATHY PERIPHERAL [None]
  - VARICES OESOPHAGEAL [None]
